FAERS Safety Report 8031507-6 (Version None)
Quarter: 2011Q4

REPORT INFORMATION
  Report Type: 
  Country: None (occurrence: None)
  Receive Date: 20111201
  Receipt Date: 20110302
  Transmission Date: 20120403
  Serious: Yes (Other)
  Sender: FDA-Public Use
  Company Number: 2011SP009799

PATIENT
  Age: 74 Year
  Sex: Female

DRUGS (3)
  1. NASONEX [Suspect]
     Indication: PRODUCT USED FOR UNKNOWN INDICATION
  2. BOOST [Suspect]
     Indication: PRODUCT USED FOR UNKNOWN INDICATION
  3. SUPER POLIGRIP ULTRA FRESH DENTURE ADHESIVE [Suspect]
     Indication: DENTURE WEARER
     Dosage: 1 DF

REACTIONS (2)
  - AGEUSIA [None]
  - ANOSMIA [None]
